FAERS Safety Report 5153003-6 (Version None)
Quarter: 2006Q4

REPORT INFORMATION
  Report Type: 
  Country: None (occurrence: None)
  Receive Date: 20061117
  Receipt Date: 20061107
  Transmission Date: 20070319
  Serious: Yes (Death)
  Sender: FDA-Public Use
  Company Number: US-JNJFOC-20060903233

PATIENT
  Sex: Male

DRUGS (11)
  1. REMICADE [Suspect]
     Indication: ANKYLOSING SPONDYLITIS
     Dosage: FIRST INFUSION
     Route: 042
  2. ELAVIL [Concomitant]
  3. FOLIC ACID [Concomitant]
     Dosage: ON FRIDAY
  4. NEURONTIN [Concomitant]
     Dosage: ON FRIDAY
  5. PRAVACHOL [Concomitant]
     Dosage: ON FRIDAY
  6. SYNTHROID [Concomitant]
     Dosage: ON FRIDAY
  7. VICODIN [Concomitant]
     Dosage: ON FRIDAY
  8. VITAMIN B COMPLEX CAP [Concomitant]
  9. VOLTAREN [Concomitant]
  10. ZOLOFT [Concomitant]
  11. ARAVA [Concomitant]

REACTIONS (6)
  - DEATH [None]
  - PNEUMONIA [None]
  - RENAL FAILURE ACUTE [None]
  - RESPIRATORY FAILURE [None]
  - SEPTIC SHOCK [None]
  - UROSEPSIS [None]
